FAERS Safety Report 18527145 (Version 1)
Quarter: 2020Q4

REPORT INFORMATION
  Report Type: Spontaneous
  Country: US (occurrence: US)
  Receive Date: 20201120
  Receipt Date: 20201120
  Transmission Date: 20210114
  Serious: No
  Sender: FDA-Public Use
  Company Number: None

PATIENT
  Age: 69 Year
  Sex: Male
  Weight: 87.5 kg

DRUGS (1)
  1. PROTAMINE [Suspect]
     Active Substance: PROTAMINE
     Route: 042
     Dates: start: 20201119, end: 20201119

REACTIONS (2)
  - Heart rate decreased [None]
  - Blood pressure decreased [None]

NARRATIVE: CASE EVENT DATE: 20201119
